FAERS Safety Report 21506428 (Version 1)
Quarter: 2022Q4

REPORT INFORMATION
  Report Type: Spontaneous
  Country: GB (occurrence: None)
  Receive Date: 20221026
  Receipt Date: 20221026
  Transmission Date: 20230113
  Serious: Yes (Life-Threatening, Hospitalization, Other)
  Sender: FDA-Public Use
  Company Number: 2022A352962

PATIENT
  Age: 56 Year
  Sex: Female
  Weight: 66.4 kg

DRUGS (11)
  1. DAPAGLIFLOZIN [Suspect]
     Active Substance: DAPAGLIFLOZIN
     Route: 065
  2. CETRABEN EMOLLIENT [Concomitant]
     Indication: Skin irritation
     Dosage: USE 3-4 TIMES A DAY (USE AS A MOISTURISER)
     Route: 065
     Dates: start: 20220628, end: 20220810
  3. GLICLAZIDE [Concomitant]
     Active Substance: GLICLAZIDE
     Dosage: 40 WITH BREAKFAST EVERY DAY
     Route: 065
     Dates: start: 20220819
  4. MICONAZOLE [Concomitant]
     Active Substance: MICONAZOLE
     Indication: Skin irritation
     Dosage: 30 APPLY THINLY 1 / DAY
     Route: 065
     Dates: start: 20220628, end: 20220810
  5. HYDROCORTISONE [Concomitant]
     Active Substance: HYDROCORTISONE
     Indication: Skin irritation
     Dosage: 30 APPLY THINLY 1 / DAY
     Route: 065
     Dates: start: 20220628, end: 20220810
  6. TERBINAFINE [Concomitant]
     Active Substance: TERBINAFINE
     Dosage: 60 APPLY THINLY 1 / DAY
     Route: 065
     Dates: start: 20220825
  7. ATORVASTATIN [Concomitant]
     Active Substance: ATORVASTATIN
     Dosage: 20
     Route: 065
  8. CLOPIDOGREL [Concomitant]
     Active Substance: CLOPIDOGREL BISULFATE
     Dosage: 75
     Route: 065
  9. LANSOPRAZOLE [Concomitant]
     Active Substance: LANSOPRAZOLE
     Dosage: 15
     Route: 065
  10. OLANZAPINE [Concomitant]
     Active Substance: OLANZAPINE
     Dosage: 7.5
     Route: 065
  11. SERTRALINE [Concomitant]
     Active Substance: SERTRALINE HYDROCHLORIDE
     Dosage: 100
     Route: 065

REACTIONS (3)
  - Candida sepsis [Recovering/Resolving]
  - Fungaemia [Recovering/Resolving]
  - Genital candidiasis [Recovering/Resolving]
